FAERS Safety Report 18967765 (Version 1)
Quarter: 2021Q1

REPORT INFORMATION
  Report Type: Spontaneous
  Country: DE (occurrence: DE)
  Receive Date: 20210304
  Receipt Date: 20210304
  Transmission Date: 20210420
  Serious: Yes (Other)
  Sender: FDA-Public Use
  Company Number: DE-IGSA-BIG0012932

PATIENT
  Age: 60 Year
  Sex: Male
  Weight: 68 kg

DRUGS (7)
  1. PROLASTIN [Suspect]
     Active Substance: .ALPHA.1-PROTEINASE INHIBITOR HUMAN
     Indication: ALPHA-1 ANTITRYPSIN DEFICIENCY
     Dosage: 5000 MILLIGRAM, Q.WK.
     Route: 042
     Dates: start: 20191113
  2. PROLASTIN [Suspect]
     Active Substance: .ALPHA.1-PROTEINASE INHIBITOR HUMAN
     Dosage: 5000 MILLIGRAM, Q.WK.
     Route: 042
     Dates: start: 20210111, end: 20210111
  3. PROLASTIN [Suspect]
     Active Substance: .ALPHA.1-PROTEINASE INHIBITOR HUMAN
     Dosage: 5000 MILLIGRAM, Q.WK.
     Route: 042
     Dates: start: 20201221, end: 20201221
  4. THYRONAJOD [Concomitant]
     Active Substance: LEVOTHYROXINE SODIUM\POTASSIUM IODIDE
     Indication: THYROID DISORDER
  5. CANDESARTAN + HCTZ MK [Concomitant]
     Indication: HYPERTENSION
     Dosage: UNK UNK, QD
  6. FORMOTEROL [Concomitant]
     Active Substance: FORMOTEROL
     Indication: PRODUCT USED FOR UNKNOWN INDICATION
     Dosage: UNK UNK, BID
     Route: 045
  7. METOPROLOL. [Concomitant]
     Active Substance: METOPROLOL
     Indication: HYPERTENSION
     Dosage: 50 MILLIGRAM, QD

REACTIONS (6)
  - Product dose omission in error [Unknown]
  - Pain in extremity [Recovered/Resolved]
  - Suspected transmission of an infectious agent via product [Unknown]
  - Pain [Recovered/Resolved]
  - Nausea [Recovered/Resolved]
  - Chills [Recovered/Resolved]

NARRATIVE: CASE EVENT DATE: 20201221
